FAERS Safety Report 14540181 (Version 2)
Quarter: 2018Q1

REPORT INFORMATION
  Report Type: Spontaneous
  Country: DE (occurrence: DE)
  Receive Date: 20180216
  Receipt Date: 20180315
  Transmission Date: 20180509
  Serious: Yes (Hospitalization, Disabling)
  Sender: FDA-Public Use
  Company Number: DE-AMGEN-DEUSP2017190466

PATIENT
  Age: 71 Year
  Sex: Female
  Weight: 62 kg

DRUGS (3)
  1. PROLIA [Suspect]
     Active Substance: DENOSUMAB
     Indication: OSTEOPOROSIS POSTMENOPAUSAL
     Dosage: 60 MG, Q6MO
     Route: 058
     Dates: start: 20170411
  2. EUTHYROX [Concomitant]
     Active Substance: LEVOTHYROXINE SODIUM
     Indication: THYROID DISORDER
     Dosage: 75 MCG, QD
  3. DORZOCOMP [Concomitant]
     Indication: INTRAOCULAR PRESSURE TEST ABNORMAL
     Dosage: 20 MG, BID

REACTIONS (15)
  - Hypertension [Not Recovered/Not Resolved]
  - Back pain [Not Recovered/Not Resolved]
  - Weight increased [Not Recovered/Not Resolved]
  - Asthenia [Not Recovered/Not Resolved]
  - Pain in extremity [Not Recovered/Not Resolved]
  - Limb discomfort [Not Recovered/Not Resolved]
  - Vertigo [Not Recovered/Not Resolved]
  - Dizziness [Not Recovered/Not Resolved]
  - Gait disturbance [Not Recovered/Not Resolved]
  - Balance disorder [Not Recovered/Not Resolved]
  - Speech disorder [Not Recovered/Not Resolved]
  - Emphysema [Not Recovered/Not Resolved]
  - Herpes zoster [Not Recovered/Not Resolved]
  - Muscular weakness [Not Recovered/Not Resolved]
  - Peripheral swelling [Not Recovered/Not Resolved]

NARRATIVE: CASE EVENT DATE: 2017
